FAERS Safety Report 8603093-0 (Version None)
Quarter: 2012Q3

REPORT INFORMATION
  Report Type: 
  Country: None (occurrence: None)
  Receive Date: 20120817
  Receipt Date: 20110831
  Transmission Date: 20120928
  Serious: No
  Sender: FDA-Public Use
  Company Number: US-GLAXOSMITHKLINE-A0942966A

PATIENT
  Age: 69 Year
  Sex: Male

DRUGS (2)
  1. TAGAMET HB 200 [Suspect]
     Indication: FLATULENCE
     Route: 048
     Dates: start: 20110831
  2. PRILOSEC [Suspect]
     Route: 065

REACTIONS (2)
  - DRUG ADMINISTRATION ERROR [None]
  - HEART RATE DECREASED [None]
